FAERS Safety Report 8617527-9 (Version None)
Quarter: 2012Q3

REPORT INFORMATION
  Report Type: 
  Country: None (occurrence: None)
  Receive Date: 20120824
  Receipt Date: 20111212
  Transmission Date: 20120928
  Serious: No
  Sender: FDA-Public Use
  Company Number: US-ASTRAZENECA-2011SE67550

PATIENT
  Age: 49 Year
  Sex: Male
  Weight: 74.8 kg

DRUGS (4)
  1. DIAVAN [Concomitant]
     Indication: HYPERTENSION
     Route: 048
  2. SYMBICORT [Suspect]
     Dosage: 2 PUFF, TWO TIMES A DAY
     Route: 055
  3. SYMBICORT [Suspect]
     Dosage: 1 PUFF, BID
     Route: 055
  4. SYMBICORT [Suspect]
     Indication: ASTHMA
     Dosage: 80/4.5 MCG, BID
     Route: 055
     Dates: start: 20110501

REACTIONS (2)
  - CIRCUMSTANCE OR INFORMATION CAPABLE OF LEADING TO MEDICATION ERROR [None]
  - ASTHMA [None]
